FAERS Safety Report 7382696-8 (Version None)
Quarter: 2011Q1

REPORT INFORMATION
  Report Type: 
  Country: None (occurrence: None)
  Receive Date: 20110330
  Receipt Date: 20110321
  Transmission Date: 20110831
  Serious: Yes (Hospitalization)
  Sender: FDA-Public Use
  Company Number: US-BIOGENIDEC-2010BI040290

PATIENT
  Age: 56 Year
  Sex: Male

DRUGS (15)
  1. TIZANIDINE [Concomitant]
     Indication: MULTIPLE SCLEROSIS
  2. VITAMIN A [Concomitant]
     Indication: SUPPLEMENTATION THERAPY
     Route: 048
  3. TYSABRI [Suspect]
     Indication: MULTIPLE SCLEROSIS
     Route: 042
     Dates: start: 20101101, end: 20101101
  4. VITAMIN D [Concomitant]
     Indication: SUPPLEMENTATION THERAPY
     Route: 048
  5. KLONOPIN [Concomitant]
     Indication: MULTIPLE SCLEROSIS
  6. AMPYRA [Concomitant]
     Indication: MULTIPLE SCLEROSIS
     Route: 048
  7. PENTOXIFYLLINE [Concomitant]
     Indication: MULTIPLE SCLEROSIS
     Route: 048
  8. ACETAMINOPHEN [Concomitant]
     Indication: PYREXIA
  9. ACETAMINOPHEN [Concomitant]
     Indication: PAIN
  10. VITAMIN B-12 [Concomitant]
     Indication: SUPPLEMENTATION THERAPY
     Route: 048
  11. MULTI-VITAMIN [Concomitant]
     Indication: SUPPLEMENTATION THERAPY
     Route: 048
  12. VITAMIN E [Concomitant]
     Indication: SUPPLEMENTATION THERAPY
     Route: 048
  13. BACLOFEN [Concomitant]
     Indication: MULTIPLE SCLEROSIS
  14. ASPIRIN [Concomitant]
     Indication: CARDIOVASCULAR EVENT PROPHYLAXIS
     Route: 048
  15. ASCORBIC ACID [Concomitant]
     Indication: SUPPLEMENTATION THERAPY
     Route: 048

REACTIONS (2)
  - CELLULITIS [None]
  - OSTEOMYELITIS [None]
